FAERS Safety Report 14630216 (Version 3)
Quarter: 2020Q1

REPORT INFORMATION
  Report Type: Spontaneous
  Country: US (occurrence: US)
  Receive Date: 20180313
  Receipt Date: 20200123
  Transmission Date: 20200409
  Serious: No
  Sender: FDA-Public Use
  Company Number: US-PFIZER INC-2018054536

PATIENT
  Age: 61 Year
  Sex: Female

DRUGS (1)
  1. XELJANZ [Suspect]
     Active Substance: TOFACITINIB CITRATE
     Indication: ARTHROPATHY
     Dosage: 5 MG, 2X/DAY
     Route: 048

REACTIONS (5)
  - Arthralgia [Unknown]
  - Off label use [Unknown]
  - Malaise [Unknown]
  - Fibromyalgia [Unknown]
  - Product use in unapproved indication [Unknown]
